FAERS Safety Report 15373034 (Version 1)
Quarter: 2018Q3

REPORT INFORMATION
  Report Type: Spontaneous
  Country: AU (occurrence: AU)
  Receive Date: 20180912
  Receipt Date: 20180912
  Transmission Date: 20181010
  Serious: Yes (Other)
  Sender: FDA-Public Use
  Company Number: AU-BAUSCH-BL-2018-024659

PATIENT
  Sex: Female

DRUGS (5)
  1. ROSUVASTATIN. [Concomitant]
     Active Substance: ROSUVASTATIN
     Indication: PRODUCT USED FOR UNKNOWN INDICATION
  2. PANADEINE FORTE [Concomitant]
     Active Substance: ACETAMINOPHEN\CODEINE PHOSPHATE
     Indication: PRODUCT USED FOR UNKNOWN INDICATION
  3. DIAZEPAM. [Concomitant]
     Active Substance: DIAZEPAM
     Indication: PRODUCT USED FOR UNKNOWN INDICATION
  4. DEXAMETHASONE. [Suspect]
     Active Substance: DEXAMETHASONE
     Indication: PRODUCT USED FOR UNKNOWN INDICATION
     Route: 065
  5. METOPROLOL. [Concomitant]
     Active Substance: METOPROLOL
     Indication: PRODUCT USED FOR UNKNOWN INDICATION

REACTIONS (14)
  - Electrocardiogram QT prolonged [Unknown]
  - Anxiety [Unknown]
  - Magnesium deficiency [Unknown]
  - Feeling hot [Unknown]
  - Heart rate increased [Unknown]
  - Pyrexia [Unknown]
  - Asthenia [Unknown]
  - Blood pressure increased [Unknown]
  - Irritability [Unknown]
  - Abdominal distension [Unknown]
  - Malaise [Unknown]
  - Hyperhidrosis [Unknown]
  - Cold sweat [Unknown]
  - Palpitations [Unknown]
